FAERS Safety Report 4892455-3 (Version None)
Quarter: 2006Q1

REPORT INFORMATION
  Report Type: 
  Country: None (occurrence: None)
  Receive Date: 20060126
  Receipt Date: 20060117
  Transmission Date: 20060701
  Serious: Yes (Other)
  Sender: FDA-Public Use
  Company Number: PHEH2006US01040

PATIENT
  Age: 11 Year
  Sex: Female

DRUGS (3)
  1. FOCALIN XR [Suspect]
     Indication: ATTENTION DEFICIT/HYPERACTIVITY DISORDER
     Dosage: 20 MG, QD
     Route: 048
     Dates: start: 20051101
  2. FOCALIN XR [Suspect]
     Dosage: 30 MG, QD
     Route: 048
     Dates: start: 20051101
  3. FOCALIN XR [Suspect]
     Route: 048
     Dates: start: 20051001

REACTIONS (6)
  - ALOPECIA [None]
  - DRUG INEFFECTIVE [None]
  - HAIR DISORDER [None]
  - HOT FLUSH [None]
  - RASH [None]
  - VISUAL ACUITY REDUCED [None]
